FAERS Safety Report 4903898-3 (Version None)
Quarter: 2006Q1

REPORT INFORMATION
  Report Type: 
  Country: None (occurrence: None)
  Receive Date: 20060208
  Receipt Date: 20050722
  Transmission Date: 20060701
  Serious: No
  Sender: FDA-Public Use
  Company Number: US-GLAXOSMITHKLINE-A0567254A

PATIENT
  Sex: Female

DRUGS (3)
  1. PAXIL [Suspect]
     Dosage: 10MG PER DAY
     Route: 048
  2. TYLENOL [Concomitant]
  3. ANTI-CHOLESTEROL MEDICATION [Concomitant]

REACTIONS (9)
  - AGITATION [None]
  - DRUG INEFFECTIVE [None]
  - HEADACHE [None]
  - HEART RATE DECREASED [None]
  - INCREASED APPETITE [None]
  - IRRITABILITY [None]
  - NAUSEA [None]
  - TREMOR [None]
  - WEIGHT INCREASED [None]
